FAERS Safety Report 9970006 (Version 1)
Quarter: 2014Q1

REPORT INFORMATION
  Report Type: Spontaneous
  Country: DE (occurrence: DE)
  Receive Date: 20140306
  Receipt Date: 20140306
  Transmission Date: 20141002
  Serious: Yes (Hospitalization)
  Sender: FDA-Public Use
  Company Number: DE-ELI_LILLY_AND_COMPANY-DE201402009267

PATIENT
  Age: 16 Year
  Sex: Female

DRUGS (2)
  1. ZYPREXA [Suspect]
     Indication: PRODUCT USED FOR UNKNOWN INDICATION
     Dosage: 10 MG, EACH MORNING
     Route: 048
     Dates: start: 201312
  2. ZYPREXA [Suspect]
     Dosage: 5 MG, EACH EVENING
     Route: 048
     Dates: start: 201312

REACTIONS (2)
  - Nystagmus [Not Recovered/Not Resolved]
  - Off label use [Not Recovered/Not Resolved]
